FAERS Safety Report 5675296-9 (Version None)
Quarter: 2008Q2

REPORT INFORMATION
  Report Type: 
  Country: None (occurrence: None)
  Receive Date: 20080307
  Receipt Date: 20071214
  Transmission Date: 20081010
  Serious: Yes (Other)
  Sender: FDA-Public Use
  Company Number: US200710003284

PATIENT
  Age: 67 Year
  Sex: Female
  Weight: 131.5 kg

DRUGS (3)
  1. GEMZAR [Suspect]
     Indication: OVARIAN CANCER RECURRENT
     Dosage: 800 MG/M2, INTRAVENOUS ; 650 MG/M2, INTRAVENOUS
     Route: 042
     Dates: start: 20070706, end: 20070809
  2. GEMZAR [Suspect]
     Indication: OVARIAN CANCER RECURRENT
     Dosage: 800 MG/M2, INTRAVENOUS ; 650 MG/M2, INTRAVENOUS
     Route: 042
     Dates: start: 20070809, end: 20071010
  3. TAXOL [Concomitant]

REACTIONS (3)
  - DIZZINESS [None]
  - DYSPNOEA EXERTIONAL [None]
  - HAEMATOCRIT DECREASED [None]
